FAERS Safety Report 11071878 (Version 1)
Quarter: 2015Q2

REPORT INFORMATION
  Report Type: Spontaneous
  Country: IT (occurrence: None)
  Receive Date: 20150424
  Receipt Date: 20150424
  Transmission Date: 20150821
  Serious: Yes (Hospitalization)
  Sender: FDA-Public Use
  Company Number: 2832194

PATIENT
  Age: 25 Year
  Sex: Male

DRUGS (5)
  1. (VANCOMYCIN HYDROCHLORIDE) [Suspect]
     Active Substance: VANCOMYCIN HYDROCHLORIDE
     Indication: ANTIBIOTIC PROPHYLAXIS
     Dosage: 1 G GRAM(S) (1 DAY)?INTRAVENOUS (NOT OTHERWISE SPECIFIED)
     Route: 042
     Dates: start: 20150314, end: 20150325
  2. OMEPRAZOLE. [Concomitant]
     Active Substance: OMEPRAZOLE
  3. CEFTRIAXONE SODIUM. [Concomitant]
     Active Substance: CEFTRIAXONE SODIUM
  4. CIPROFLOXACIN. [Concomitant]
     Active Substance: CIPROFLOXACIN
  5. MAALOX ANTACID [Concomitant]
     Active Substance: ALUMINUM HYDROXIDE\DIMETHICONE\MAGNESIUM HYDROXIDE

REACTIONS (12)
  - Exocrine pancreatic function test abnormal [None]
  - Fibrin D dimer increased [None]
  - Red blood cell analysis abnormal [None]
  - Lipase increased [None]
  - Urticaria [None]
  - Amylase increased [None]
  - Drug hypersensitivity [None]
  - Pruritus generalised [None]
  - Blood creatine phosphokinase increased [None]
  - Microlithiasis [None]
  - Blood sodium increased [None]
  - White blood cell count increased [None]

NARRATIVE: CASE EVENT DATE: 20150405
